FAERS Safety Report 4686994-8 (Version None)
Quarter: 2005Q2

REPORT INFORMATION
  Report Type: 
  Country: None (occurrence: None)
  Receive Date: 20050606
  Receipt Date: 20050520
  Transmission Date: 20051028
  Serious: Yes (Life-Threatening, Other)
  Sender: FDA-Public Use
  Company Number: DE_050515992

PATIENT
  Age: 72 Year
  Sex: Female
  Weight: 62 kg

DRUGS (7)
  1. GEMZAR [Suspect]
     Indication: BRONCHIAL CARCINOMA
     Dosage: 1660 MG
     Dates: start: 20050324, end: 20050101
  2. CISPLATIN [Concomitant]
  3. LORAZEPAM [Concomitant]
  4. PANTOPRAZOLE SODIUM [Concomitant]
  5. MST 10 (MORPHINE SULFATE) [Concomitant]
  6. CLEXANE (ENOXAPRIN SODIUM) [Concomitant]
  7. METOCLOPRAMIDE HYDROCHLORIDE [Concomitant]

REACTIONS (1)
  - ARTERIAL OCCLUSIVE DISEASE [None]
